FAERS Safety Report 9775171 (Version 1)
Quarter: 2013Q4

REPORT INFORMATION
  Report Type: Report from Study
  Country: US (occurrence: US)
  Receive Date: 20131220
  Receipt Date: 20131220
  Transmission Date: 20140711
  Serious: Yes (Hospitalization)
  Sender: FDA-Public Use
  Company Number: US-ABBVIE-13P-163-1178122-00

PATIENT
  Age: 53 Year
  Sex: Male
  Weight: 95.34 kg

DRUGS (12)
  1. HUMIRA [Suspect]
     Indication: CROHN^S DISEASE
     Route: 058
     Dates: start: 20110418, end: 20131122
  2. FLAGYL [Concomitant]
     Indication: CROHN^S DISEASE
     Route: 048
  3. METOPROLOL [Concomitant]
     Indication: HYPERTENSION
     Route: 048
  4. PREDNISONE [Concomitant]
     Indication: CROHN^S DISEASE
     Route: 048
  5. METHOTREXATE [Concomitant]
     Indication: CROHN^S DISEASE
     Route: 030
  6. NORTRYPTILLINE [Concomitant]
     Indication: PRODUCT USED FOR UNKNOWN INDICATION
     Route: 048
  7. OMEPRAZOLE [Concomitant]
     Indication: GASTROOESOPHAGEAL REFLUX DISEASE
     Route: 048
  8. MULTIVITAMIN [Concomitant]
     Indication: VITAMIN SUPPLEMENTATION
     Route: 048
  9. VITAMIN D3 [Concomitant]
     Indication: VITAMIN SUPPLEMENTATION
     Route: 048
  10. OMEGA 3 [Concomitant]
     Indication: SUPPLEMENTATION THERAPY
     Route: 048
  11. OXYCODONE [Concomitant]
     Indication: PAIN
     Route: 048
  12. SLOW IRON [Concomitant]
     Indication: MINERAL SUPPLEMENTATION
     Route: 048

REACTIONS (10)
  - Muscular weakness [Recovering/Resolving]
  - Thrombosis [Not Recovered/Not Resolved]
  - Thrombosis [Not Recovered/Not Resolved]
  - Septic shock [Recovering/Resolving]
  - Endocarditis [Recovering/Resolving]
  - Fall [Recovering/Resolving]
  - Diabetes mellitus [Not Recovered/Not Resolved]
  - Endocarditis [Recovered/Resolved]
  - Pericarditis [Recovering/Resolving]
  - Anal fistula [Unknown]
